FAERS Safety Report 25160895 (Version 1)
Quarter: 2025Q2

REPORT INFORMATION
  Report Type: Spontaneous
  Country: US (occurrence: US)
  Receive Date: 20250404
  Receipt Date: 20250404
  Transmission Date: 20250716
  Serious: No
  Sender: AGILE THERAPEUTICS
  Company Number: US-AGILE THERAPEUTICS, INC.-US-AGI-2024-000910

PATIENT
  Age: 15 Year
  Sex: Female

DRUGS (1)
  1. TWIRLA [Suspect]
     Active Substance: ETHINYL ESTRADIOL\LEVONORGESTREL
     Indication: Abnormal uterine bleeding
     Route: 062
     Dates: start: 20241016, end: 20241209

REACTIONS (1)
  - Product adhesion issue [Recovered/Resolved]

NARRATIVE: CASE EVENT DATE: 20241106
